FAERS Safety Report 5607980-7 (Version None)
Quarter: 2008Q1

REPORT INFORMATION
  Report Type: 
  Country: None (occurrence: None)
  Receive Date: 20080130
  Receipt Date: 20080123
  Transmission Date: 20080703
  Serious: Yes (Hospitalization)
  Sender: FDA-Public Use
  Company Number: A0706399A

PATIENT
  Age: 49 Year
  Sex: Female
  Weight: 145 kg

DRUGS (21)
  1. AVANDIA [Suspect]
     Dosage: 4MG TWICE PER DAY
     Route: 048
     Dates: start: 20050101, end: 20070404
  2. GLUCOTROL XL [Concomitant]
     Dosage: 10MG TWICE PER DAY
  3. NPH REGULAR INSULIN [Concomitant]
     Dosage: 50UNIT TWICE PER DAY
  4. DIOVAN [Concomitant]
     Indication: HYPERTENSION
  5. MAXZIDE [Concomitant]
  6. COMBIVENT [Concomitant]
     Indication: CHRONIC OBSTRUCTIVE PULMONARY DISEASE
  7. SINGULAIR [Concomitant]
     Indication: CHRONIC OBSTRUCTIVE PULMONARY DISEASE
  8. ALBUTEROL [Concomitant]
  9. PRILOSEC [Concomitant]
  10. LIPITOR [Concomitant]
  11. TAPAZOLE [Concomitant]
     Dates: end: 20070401
  12. GLIPIZIDE [Concomitant]
  13. NOVOLIN 50/50 [Concomitant]
  14. LASIX [Concomitant]
     Indication: HYPERTENSION
  15. LYRICA [Concomitant]
  16. POTASSIUM CHLORIDE [Concomitant]
     Indication: HYPERTENSION
  17. ZANTAC [Concomitant]
  18. TRIDESILON [Concomitant]
     Indication: ECZEMA
  19. HYDROCORTISONE [Concomitant]
     Indication: ECZEMA
  20. CPAP [Concomitant]
  21. OXYGEN [Concomitant]

REACTIONS (14)
  - CARDIAC FAILURE CONGESTIVE [None]
  - CARDIOMEGALY [None]
  - DYSPNOEA [None]
  - FATIGUE [None]
  - HYPERTENSION [None]
  - HYPOKALAEMIA [None]
  - LEFT VENTRICULAR HYPERTROPHY [None]
  - MALAISE [None]
  - MITRAL VALVE INCOMPETENCE [None]
  - OEDEMA PERIPHERAL [None]
  - ORTHOPNOEA [None]
  - PRODUCTIVE COUGH [None]
  - SINUS TACHYCARDIA [None]
  - TRICUSPID VALVE INCOMPETENCE [None]
